FAERS Safety Report 9422723 (Version 1)
Quarter: 2013Q3

REPORT INFORMATION
  Report Type: Spontaneous
  Country: GB (occurrence: GB)
  Receive Date: 20130726
  Receipt Date: 20130726
  Transmission Date: 20140515
  Serious: Yes (Disabling)
  Sender: FDA-Public Use
  Company Number: GB-JNJFOC-20130713510

PATIENT
  Sex: Male
  Weight: 62 kg

DRUGS (4)
  1. XARELTO [Suspect]
     Indication: ANTICOAGULANT THERAPY
     Route: 048
     Dates: start: 20130429
  2. SIMVASTATIN [Concomitant]
     Route: 048
     Dates: start: 20101018
  3. LISINOPRIL [Concomitant]
     Indication: HYPERTENSION
     Route: 048
     Dates: start: 20070723
  4. ALFUZOSIN [Concomitant]
     Route: 048
     Dates: start: 19990629

REACTIONS (1)
  - Memory impairment [Not Recovered/Not Resolved]
